FAERS Safety Report 11442251 (Version 1)
Quarter: 2015Q3

REPORT INFORMATION
  Report Type: Spontaneous
  Country: CN (occurrence: CN)
  Receive Date: 20150901
  Receipt Date: 20150901
  Transmission Date: 20151125
  Serious: Yes (Other)
  Sender: FDA-Public Use
  Company Number: CN-JNJFOC-20150821136

PATIENT

DRUGS (3)
  1. PAZUFLOXACIN [Suspect]
     Active Substance: PAZUFLOXACIN
     Indication: INFECTION PROPHYLAXIS
     Route: 042
  2. LEVOFLOXACIN. [Suspect]
     Active Substance: LEVOFLOXACIN
     Indication: INFECTION PROPHYLAXIS
     Route: 065
  3. ITRACONAZOLE. [Suspect]
     Active Substance: ITRACONAZOLE
     Indication: INFECTION PROPHYLAXIS
     Route: 048

REACTIONS (3)
  - Urinary tract infection [Unknown]
  - Respiratory tract infection [Unknown]
  - Skin infection [Unknown]
